FAERS Safety Report 5874407-X (Version None)
Quarter: 2008Q3

REPORT INFORMATION
  Report Type: 
  Country: None (occurrence: None)
  Receive Date: 20080908
  Receipt Date: 20080827
  Transmission Date: 20090109
  Serious: Yes (Hospitalization)
  Sender: FDA-Public Use
  Company Number: US-PFIZER INC-2008071759

PATIENT
  Sex: Male
  Weight: 119 kg

DRUGS (7)
  1. SUTENT [Suspect]
     Indication: METASTATIC RENAL CELL CARCINOMA
     Route: 048
     Dates: start: 20070213
  2. HYZAAR [Suspect]
     Route: 048
     Dates: start: 20051122
  3. DICLOXACILLIN [Concomitant]
     Route: 048
     Dates: start: 20080405
  4. ALLOPURINOL [Concomitant]
     Route: 048
     Dates: start: 20060726
  5. ZOLOFT [Concomitant]
     Route: 048
     Dates: start: 20060725
  6. VYTORIN [Concomitant]
     Route: 048
     Dates: start: 20051122
  7. ADVAIR DISKUS 100/50 [Concomitant]
     Route: 048
     Dates: start: 20051122

REACTIONS (2)
  - HYPOTENSION [None]
  - TACHYCARDIA [None]
